FAERS Safety Report 6847456-2 (Version None)
Quarter: 2010Q3

REPORT INFORMATION
  Report Type: 
  Country: None (occurrence: None)
  Receive Date: 20100716
  Receipt Date: 20100709
  Transmission Date: 20110219
  Serious: Yes (Hospitalization)
  Sender: FDA-Public Use
  Company Number: RU-ASTRAZENECA-2010SE31946

PATIENT
  Age: 58 Year
  Sex: Female
  Weight: 53 kg

DRUGS (1)
  1. NEXIUM [Suspect]
     Indication: DUODENAL ULCER
     Dosage: 20 MG, DAILY; 6 MONTHS AGO - 12 TABLETS, 09-JUL-2010 - ONE TABLET.
     Route: 048
     Dates: start: 20100709, end: 20100709

REACTIONS (3)
  - HYPERAEMIA [None]
  - LARYNGEAL OEDEMA [None]
  - RASH GENERALISED [None]
